FAERS Safety Report 14108886 (Version 2)
Quarter: 2017Q4

REPORT INFORMATION
  Report Type: Spontaneous
  Country: JP (occurrence: JP)
  Receive Date: 20171019
  Receipt Date: 20171026
  Transmission Date: 20180321
  Serious: No
  Sender: FDA-Public Use
  Company Number: JP-DSJP-DSJ-2017-138963

PATIENT

DRUGS (7)
  1. CLOTIAZEPAM TOWA [Concomitant]
     Indication: AUTONOMIC NERVOUS SYSTEM IMBALANCE
     Dosage: 5 MG, TID
     Route: 065
  2. FLUITRAN [Concomitant]
     Active Substance: TRICHLORMETHIAZIDE
     Indication: HYPERTENSION
     Dosage: 1 MG, QD
     Route: 065
     Dates: start: 20161115
  3. TRAZENTA [Concomitant]
     Active Substance: LINAGLIPTIN
     Indication: DIABETES MELLITUS
     Dosage: 5 MG, QD
     Route: 065
     Dates: start: 20161209
  4. OLMETEC OD TABLETS 20MG [Suspect]
     Active Substance: OLMESARTAN MEDOXOMIL
     Indication: HYPERTENSION
     Dosage: 20 MG, QD
     Route: 065
     Dates: start: 20161115
  5. ADALAT [Concomitant]
     Active Substance: NIFEDIPINE
     Indication: HYPERTENSION
     Dosage: 20 MG, QD
     Route: 065
     Dates: start: 20161115
  6. GRANPAM [Concomitant]
     Indication: AUTONOMIC NERVOUS SYSTEM IMBALANCE
     Dosage: 50 MG, TID
     Route: 065
  7. TOKISHAKUYAKUSAN                   /08000701/ [Concomitant]
     Active Substance: HERBALS
     Indication: AUTONOMIC NERVOUS SYSTEM IMBALANCE
     Dosage: 2.5 G, TID
     Route: 065

REACTIONS (1)
  - Cardiac arrest [Unknown]

NARRATIVE: CASE EVENT DATE: 201708
